FAERS Safety Report 5702840-5 (Version None)
Quarter: 2008Q2

REPORT INFORMATION
  Report Type: 
  Country: None (occurrence: None)
  Receive Date: 20080411
  Receipt Date: 20080407
  Transmission Date: 20081010
  Serious: Yes (Other)
  Sender: FDA-Public Use
  Company Number: JP-ASTRAZENECA-2008AP02104

PATIENT
  Age: 88 Year
  Sex: Male

DRUGS (3)
  1. MEROPENEM [Suspect]
     Indication: PNEUMONIA
     Route: 042
     Dates: start: 20080118, end: 20080129
  2. VITAMEDIN [Concomitant]
     Indication: DEHYDRATION
     Route: 041
     Dates: start: 20080122
  3. FULCALIQ NO2 [Concomitant]
     Indication: DEHYDRATION
     Route: 041
     Dates: start: 20080124

REACTIONS (1)
  - HEPATIC FUNCTION ABNORMAL [None]
